FAERS Safety Report 4478569-0 (Version None)
Quarter: 2004Q4

REPORT INFORMATION
  Report Type: 
  Country: None (occurrence: None)
  Receive Date: 20041014
  Receipt Date: 20041004
  Transmission Date: 20050328
  Serious: Yes (Other)
  Sender: FDA-Public Use
  Company Number: 2004236922US

PATIENT

DRUGS (1)
  1. CELEBREX [Suspect]

REACTIONS (1)
  - HAEMORRHAGE [None]
